FAERS Safety Report 20279099 (Version 4)
Quarter: 2022Q1

REPORT INFORMATION
  Report Type: Report from Study
  Country: US (occurrence: US)
  Receive Date: 20220103
  Receipt Date: 20220114
  Transmission Date: 20220423
  Serious: No
  Sender: FDA-Public Use
  Company Number: US-CELGENE-USA-20211209485

PATIENT
  Age: 60 Year
  Sex: Female

DRUGS (1)
  1. ZEPOSIA [Suspect]
     Active Substance: OZANIMOD HYDROCHLORIDE
     Indication: Multiple sclerosis
     Dosage: .92 MILLIGRAM
     Route: 048
     Dates: start: 20211201

REACTIONS (8)
  - Urinary incontinence [Unknown]
  - Fall [Not Recovered/Not Resolved]
  - Heart rate decreased [Not Recovered/Not Resolved]
  - Urinary tract disorder [Not Recovered/Not Resolved]
  - Balance disorder [Unknown]
  - Influenza [Unknown]
  - Sleep disorder [Unknown]
  - Fatigue [Recovered/Resolved]

NARRATIVE: CASE EVENT DATE: 20211201
